FAERS Safety Report 11341153 (Version 1)
Quarter: 2015Q3

REPORT INFORMATION
  Report Type: Spontaneous
  Country: US (occurrence: US)
  Receive Date: 20150805
  Receipt Date: 20150805
  Transmission Date: 20151125
  Serious: Yes (Hospitalization, Other)
  Sender: FDA-Public Use
  Company Number: US-SA-2015SA113638

PATIENT
  Age: 82 Year
  Sex: Female

DRUGS (3)
  1. LANTUS SOLOSTAR [Suspect]
     Active Substance: INSULIN GLARGINE
     Indication: DIABETES MELLITUS
     Dosage: 60-70 UNITS
     Route: 065
  2. SOLOSTAR [Concomitant]
     Active Substance: DEVICE
     Dosage: DOSE:20 UNIT(S)
     Dates: start: 201506
  3. LANTUS SOLOSTAR [Suspect]
     Active Substance: INSULIN GLARGINE
     Indication: DIABETES MELLITUS
     Dosage: DOSE:20 UNIT(S)
     Route: 065
     Dates: start: 201506

REACTIONS (6)
  - Clavicle fracture [Unknown]
  - Fall [Unknown]
  - Gait disturbance [Unknown]
  - Blood glucose increased [Unknown]
  - Hip fracture [Unknown]
  - Dysstasia [Unknown]

NARRATIVE: CASE EVENT DATE: 2015
